FAERS Safety Report 9415232 (Version 1)
Quarter: 2013Q3

REPORT INFORMATION
  Report Type: Spontaneous
  Country: BR (occurrence: BR)
  Receive Date: 20130723
  Receipt Date: 20130723
  Transmission Date: 20140515
  Serious: Yes (Other)
  Sender: FDA-Public Use
  Company Number: BR-WATSON-2013-12360

PATIENT
  Age: 7 Year
  Sex: Female

DRUGS (8)
  1. TACROLIMUS (UNKNOWN) [Suspect]
     Indication: IMMUNOSUPPRESSION
     Dosage: 7 MG, BID
     Route: 065
  2. TACROLIMUS (UNKNOWN) [Suspect]
     Dosage: 7 MG, BID
     Route: 065
  3. BASILIXIMAB [Concomitant]
     Indication: IMMUNOSUPPRESSION
     Dosage: 2 DOSES, DAYS 0 AND 4
     Route: 065
  4. MYCOPHENOLATE [Concomitant]
     Indication: IMMUNOSUPPRESSION
     Dosage: 180 MG, BID
     Route: 065
  5. PREDNISONE [Concomitant]
     Indication: IMMUNOSUPPRESSION
     Dosage: 25 MG, DAILY
     Route: 048
  6. GANCICLOVIR [Concomitant]
     Indication: CYTOMEGALOVIRUS INFECTION
     Dosage: UNK
     Route: 042
  7. GANCICLOVIR [Concomitant]
     Dosage: UNK
     Route: 042
  8. AZATHIOPRINE [Concomitant]
     Indication: IMMUNOSUPPRESSION
     Dosage: UNK
     Route: 065

REACTIONS (1)
  - Post transplant distal limb syndrome [Recovered/Resolved]
